FAERS Safety Report 8538166 (Version 2)
Quarter: 2013Q4

REPORT INFORMATION
  Report Type: Report from Study
  Country: CA (occurrence: CA)
  Receive Date: 20120501
  Receipt Date: 20131111
  Transmission Date: 20140711
  Serious: Yes (Other)
  Sender: FDA-Public Use
  Company Number: PHHY2012CA035393

PATIENT
  Age: 85 Year
  Sex: Female
  Weight: 72.1 kg

DRUGS (10)
  1. ACLASTA/ZOLEDRONATE [Suspect]
     Indication: OSTEOPOROSIS
     Dosage: UNK UKN, UNK
     Route: 042
  2. ADVAIR DISKUS [Concomitant]
     Dosage: UNK UKN, UNK
  3. HYDROCHLOROTHIAZIDE [Concomitant]
     Dosage: 25 MG, UNK
  4. LIPITOR [Concomitant]
     Dosage: 40 MG, UNK
  5. OLMETEC [Concomitant]
  6. PANTOLOC [Concomitant]
     Dosage: 40 MG, UNK
  7. SYNTHROID [Concomitant]
     Dosage: 0.075 MG, UNK
  8. PROLIA [Concomitant]
     Dosage: UNK UKN, UNK
     Dates: start: 20110726
  9. VITAMIN D [Concomitant]
     Dosage: 1000 U, DAILY
     Dates: start: 20081113
  10. CALCIUM [Concomitant]
     Dosage: 500 MG, DAILY
     Dates: start: 20081113

REACTIONS (4)
  - Confusional state [Recovered/Resolved]
  - Speech disorder [Recovered/Resolved]
  - Disorientation [Recovered/Resolved]
  - Renal impairment [Unknown]
